FAERS Safety Report 23528253 (Version 1)
Quarter: 2024Q1

REPORT INFORMATION
  Report Type: Spontaneous
  Country: US (occurrence: US)
  Receive Date: 20240215
  Receipt Date: 20240215
  Transmission Date: 20240410
  Serious: No
  Sender: FDA-Public Use
  Company Number: US-PFIZER INC-202400040866

PATIENT
  Sex: Female

DRUGS (1)
  1. INLYTA [Suspect]
     Active Substance: AXITINIB
     Indication: Thyroid neoplasm
     Dosage: UNK

REACTIONS (3)
  - Off label use [Unknown]
  - Toxicity to various agents [Recovered/Resolved]
  - Drug effective for unapproved indication [Unknown]
